FAERS Safety Report 19754145 (Version 1)
Quarter: 2021Q3

REPORT INFORMATION
  Report Type: Spontaneous
  Country: US (occurrence: US)
  Receive Date: 20210827
  Receipt Date: 20210827
  Transmission Date: 20211014
  Serious: Yes (Hospitalization)
  Sender: FDA-Public Use
  Company Number: None

PATIENT
  Age: 79 Year
  Sex: Female
  Weight: 77.1 kg

DRUGS (1)
  1. REGEN?COV [Suspect]
     Active Substance: CASIRIVIMAB\IMDEVIMAB
     Indication: COVID-19
     Dosage: ?          OTHER FREQUENCY:ONE TIME;?
     Route: 042
     Dates: start: 20210818, end: 20210818

REACTIONS (3)
  - Haemoptysis [None]
  - Dyspnoea [None]
  - Cough [None]

NARRATIVE: CASE EVENT DATE: 20210824
